FAERS Safety Report 20746612 (Version 1)
Quarter: 2022Q2

REPORT INFORMATION
  Report Type: Spontaneous
  Country: US (occurrence: US)
  Receive Date: 20220425
  Receipt Date: 20220425
  Transmission Date: 20220721
  Serious: No
  Sender: FDA-Public Use
  Company Number: US-MYLANLABS-2022M1029380

PATIENT
  Sex: Female
  Weight: 48.08 kg

DRUGS (3)
  1. YUPELRI [Suspect]
     Active Substance: REVEFENACIN
     Indication: Asthma
     Dosage: 175MICROGRAM/3 MILLILITRE, BID
     Route: 055
  2. YUPELRI [Suspect]
     Active Substance: REVEFENACIN
     Indication: Pneumonia
  3. COMBIVENT [Concomitant]
     Active Substance: ALBUTEROL SULFATE\IPRATROPIUM BROMIDE
     Dosage: UNK

REACTIONS (8)
  - Eating disorder [Unknown]
  - Hypoglycaemia [Unknown]
  - Hyperhidrosis [Unknown]
  - Tremor [Not Recovered/Not Resolved]
  - Hunger [Unknown]
  - Feeling hot [Unknown]
  - Abdominal discomfort [Unknown]
  - Dizziness [Unknown]
